FAERS Safety Report 4945638-8 (Version None)
Quarter: 2006Q1

REPORT INFORMATION
  Report Type: 
  Country: None (occurrence: None)
  Receive Date: 20060117
  Receipt Date: 20050823
  Transmission Date: 20060701
  Serious: Yes (Hospitalization)
  Sender: FDA-Public Use
  Company Number: A03200502634

PATIENT
  Age: 83 Year
  Sex: Female
  Weight: 65.76 kg

DRUGS (8)
  1. PLAVIX [Suspect]
     Indication: MUSCLE SPASMS
     Dosage: 37.5 MG QD ORAL
     Route: 048
     Dates: end: 20050601
  2. PLAVIX [Suspect]
     Indication: TRANSIENT ISCHAEMIC ATTACK
     Dosage: 37.5 MG QD ORAL
     Route: 048
     Dates: end: 20050601
  3. PLAVIX [Suspect]
     Indication: MUSCLE SPASMS
     Dosage: 75 MG QD ORAL
     Route: 048
     Dates: start: 20041201
  4. PLAVIX [Suspect]
     Indication: TRANSIENT ISCHAEMIC ATTACK
     Dosage: 75 MG QD ORAL
     Route: 048
     Dates: start: 20041201
  5. ACETYLSALICYLIC ACID SRT [Concomitant]
  6. METOPROLOL [Concomitant]
  7. GEMFIBROZIL [Concomitant]
  8. METOPROLOL TARTRATE [Concomitant]

REACTIONS (8)
  - CONTUSION [None]
  - FATIGUE [None]
  - FEELING COLD [None]
  - HAEMATOCRIT DECREASED [None]
  - MALAISE [None]
  - NIGHT SWEATS [None]
  - PLATELET COUNT DECREASED [None]
  - PYREXIA [None]
